FAERS Safety Report 6868940-1 (Version None)
Quarter: 2010Q3

REPORT INFORMATION
  Report Type: 
  Country: None (occurrence: None)
  Receive Date: 20100722
  Receipt Date: 20080807
  Transmission Date: 20110219
  Serious: No
  Sender: FDA-Public Use
  Company Number: US-PFIZER INC-2008052800

PATIENT
  Sex: Male

DRUGS (2)
  1. CHANTIX [Suspect]
     Indication: SMOKING CESSATION THERAPY
     Route: 048
     Dates: start: 20080617
  2. VALIUM [Concomitant]

REACTIONS (5)
  - DISTURBANCE IN ATTENTION [None]
  - FEELING ABNORMAL [None]
  - IRRITABILITY [None]
  - LETHARGY [None]
  - MOOD SWINGS [None]
